FAERS Safety Report 12598165 (Version 1)
Quarter: 2016Q3

REPORT INFORMATION
  Report Type: Spontaneous
  Country: US (occurrence: US)
  Receive Date: 20160727
  Receipt Date: 20160727
  Transmission Date: 20161109
  Serious: No
  Sender: FDA-Public Use
  Company Number: US-BEH-2016071295

PATIENT
  Sex: Female
  Weight: 78.91 kg

DRUGS (16)
  1. TOPAMAX [Concomitant]
     Active Substance: TOPIRAMATE
  2. ZEMAIRA [Suspect]
     Active Substance: .ALPHA.1-PROTEINASE INHIBITOR HUMAN
     Indication: ALPHA-1 ANTI-TRYPSIN DEFICIENCY
     Dosage: 60 MG/KG, QW
     Route: 042
  3. LIDOCAINE/PRILOCAINE [Concomitant]
     Active Substance: LIDOCAINE\PRILOCAINE
  4. METOPROLOL SUCCINATE. [Concomitant]
     Active Substance: METOPROLOL SUCCINATE
  5. LIDOCAINE. [Concomitant]
     Active Substance: LIDOCAINE
  6. SODIUM CHLORIDE. [Concomitant]
     Active Substance: SODIUM CHLORIDE
  7. RIZATRIPTAN. [Concomitant]
     Active Substance: RIZATRIPTAN
  8. TUSSIN                             /00048001/ [Concomitant]
  9. DIPHENHYDRAMINE. [Concomitant]
     Active Substance: DIPHENHYDRAMINE
  10. HEPARIN [Concomitant]
     Active Substance: HEPARIN SODIUM
  11. VERAPAMIL ER [Concomitant]
     Active Substance: VERAPAMIL HYDROCHLORIDE
  12. BREO ELLIPTA [Concomitant]
     Active Substance: FLUTICASONE FUROATE\VILANTEROL TRIFENATATE
  13. NITROGLYCERIN. [Concomitant]
     Active Substance: NITROGLYCERIN
  14. ANORO ELLIPTA [Concomitant]
     Active Substance: UMECLIDINIUM BROMIDE\VILANTEROL TRIFENATATE
  15. BUTALBITAL, ACETAMINOPHEN, AND CAFFEINE [Concomitant]
     Active Substance: ACETAMINOPHEN\BUTALBITAL\CAFFEINE
  16. EPIPEN [Concomitant]
     Active Substance: EPINEPHRINE

REACTIONS (6)
  - Nausea [Unknown]
  - Pain [Unknown]
  - Flushing [Unknown]
  - Vomiting [Unknown]
  - Fatigue [Unknown]
  - Feeling hot [Unknown]
